FAERS Safety Report 24876181 (Version 5)
Quarter: 2025Q3

REPORT INFORMATION
  Report Type: Spontaneous
  Country: EU (occurrence: EU)
  Receive Date: 20250123
  Receipt Date: 20250710
  Transmission Date: 20251021
  Serious: Yes (Other)
  Sender: CELLTRION
  Company Number: EU-CELLTRION INC.-2025PT001399

PATIENT

DRUGS (4)
  1. RITUXIMAB [Suspect]
     Active Substance: RITUXIMAB
     Indication: Sjogren^s syndrome
     Route: 065
     Dates: start: 202008
  2. RITUXIMAB [Suspect]
     Active Substance: RITUXIMAB
     Indication: Renal disorder
     Route: 065
     Dates: start: 202201
  3. RITUXIMAB [Suspect]
     Active Substance: RITUXIMAB
     Route: 065
     Dates: start: 202302
  4. RITUXIMAB [Suspect]
     Active Substance: RITUXIMAB
     Route: 065
     Dates: start: 202008

REACTIONS (3)
  - Sarcoid-like reaction [Recovering/Resolving]
  - Granuloma [Recovering/Resolving]
  - Intentional product use issue [Unknown]
